FAERS Safety Report 24281320 (Version 6)
Quarter: 2025Q2

REPORT INFORMATION
  Report Type: Spontaneous
  Country: DE (occurrence: DE)
  Receive Date: 20240904
  Receipt Date: 20250527
  Transmission Date: 20250717
  Serious: Yes (Other)
  Sender: MYLAN
  Company Number: DE-HALEON-2192797

PATIENT
  Age: 67 Year
  Sex: Male

DRUGS (15)
  1. LEVETIRACETAM [Suspect]
     Active Substance: LEVETIRACETAM
     Indication: Seizure prophylaxis
     Dosage: 500 MILLIGRAM, BID (0.5 DAY) (1000 MG, QD)
  2. IBUPROFEN [Suspect]
     Active Substance: IBUPROFEN
     Indication: Pain
  3. IBUPROFEN [Suspect]
     Active Substance: IBUPROFEN
     Indication: Back pain
  4. IBUPROFEN [Suspect]
     Active Substance: IBUPROFEN
     Indication: Pain management
  5. TRAMADOL [Suspect]
     Active Substance: TRAMADOL
     Indication: Back pain
  6. TRAMADOL [Suspect]
     Active Substance: TRAMADOL
     Indication: Pain
  7. TRAMADOL [Suspect]
     Active Substance: TRAMADOL
     Indication: Pain management
  8. FENTANYL [Suspect]
     Active Substance: FENTANYL
     Indication: Pain management
  9. MINIRIN [Suspect]
     Active Substance: DESMOPRESSIN ACETATE
     Indication: Diabetes insipidus
     Dosage: UNK, QD (ADMINISTERED VIA A NASAL APPLICATOR)
  10. FENTANYL [Suspect]
     Active Substance: FENTANYL
     Indication: Pain
  11. FENTANYL [Suspect]
     Active Substance: FENTANYL
     Indication: Back pain
  12. LEVOTHYROXINE [Concomitant]
     Active Substance: LEVOTHYROXINE
     Indication: Postoperative care
     Dosage: 112 MICROGRAM, QD
  13. DESMOPRESSIN [Concomitant]
     Active Substance: DESMOPRESSIN
     Indication: Product used for unknown indication
     Dosage: 1 DOSAGE FORM, QD (1/DAY)
  14. HYDROCORTISONE [Concomitant]
     Active Substance: HYDROCORTISONE
     Indication: Postoperative care
     Dosage: 25 MILLIGRAM, QD, NASAL APPLICATOR
  15. TESTOSTERONE [Concomitant]
     Active Substance: TESTOSTERONE
     Indication: Postoperative care

REACTIONS (6)
  - Simple partial seizures [Recovered/Resolved]
  - Epilepsy [Recovered/Resolved]
  - Drug ineffective [Unknown]
  - Hyponatraemia [Recovered/Resolved]
  - Off label use [Unknown]
  - Intentional product misuse [Unknown]
